FAERS Safety Report 6534602-3 (Version None)
Quarter: 2010Q1

REPORT INFORMATION
  Report Type: 
  Country: None (occurrence: None)
  Receive Date: 20100112
  Receipt Date: 20100108
  Transmission Date: 20100710
  Serious: Yes (Hospitalization)
  Sender: FDA-Public Use
  Company Number: A0838764A

PATIENT
  Age: 5 Week
  Sex: Female

DRUGS (2)
  1. ZANTAC [Suspect]
     Dosage: 5ML THREE TIMES PER DAY
     Route: 048
     Dates: start: 20091229, end: 20100108
  2. NONE [Concomitant]

REACTIONS (5)
  - DECREASED APPETITE [None]
  - DIARRHOEA [None]
  - FLATULENCE [None]
  - MEDICATION ERROR [None]
  - OVERDOSE [None]
